FAERS Safety Report 8106149-4 (Version None)
Quarter: 2012Q1

REPORT INFORMATION
  Report Type: 
  Country: None (occurrence: None)
  Receive Date: 20120202
  Receipt Date: 20120125
  Transmission Date: 20120608
  Serious: Yes (Hospitalization, Other)
  Sender: FDA-Public Use
  Company Number: US-VERTEX PHARMACEUTICALS INC.-AE-2012-001300

PATIENT
  Sex: Female
  Weight: 200.67 kg

DRUGS (3)
  1. INCIVEK [Suspect]
     Indication: HEPATITIS C
     Dates: start: 20110725
  2. PEG-INTRON [Concomitant]
     Indication: HEPATITIS C
     Dates: start: 20110725
  3. RIBAVIRIN [Concomitant]
     Indication: HEPATITIS C
     Dates: start: 20110725

REACTIONS (13)
  - PANCYTOPENIA [None]
  - VERTIGO [None]
  - FATIGUE [None]
  - HYPOTENSION [None]
  - FLUID RETENTION [None]
  - WEIGHT DECREASED [None]
  - ESCHERICHIA URINARY TRACT INFECTION [None]
  - ERYTHEMA [None]
  - FUNGAL INFECTION [None]
  - OEDEMA [None]
  - CELLULITIS [None]
  - INFECTION [None]
  - EXCORIATION [None]
